FAERS Safety Report 11990408 (Version 1)
Quarter: 2016Q1

REPORT INFORMATION
  Report Type: Spontaneous
  Country: IT (occurrence: IT)
  Receive Date: 20160202
  Receipt Date: 20160202
  Transmission Date: 20160526
  Serious: Yes (Other)
  Sender: FDA-Public Use
  Company Number: IT-IGI LABORATORIES, INC.-1047216

PATIENT
  Age: 78 Year
  Sex: Female

DRUGS (7)
  1. FORTAZ [Suspect]
     Active Substance: CEFTAZIDIME SODIUM
     Indication: PNEUMONITIS
     Route: 042
     Dates: start: 201601
  2. CLEXANE [Concomitant]
     Active Substance: ENOXAPARIN SODIUM
  3. DIFLUCAN [Concomitant]
     Active Substance: FLUCONAZOLE
  4. LASIX [Concomitant]
     Active Substance: FUROSEMIDE
  5. NEXIUM [Concomitant]
     Active Substance: ESOMEPRAZOLE MAGNESIUM
  6. MOVICOL [Concomitant]
     Active Substance: POLYETHYLENE GLYCOL 3350\POTASSIUM CHLORIDE\SODIUM BICARBONATE\SODIUM CHLORIDE
  7. KCL RETARD [Concomitant]
     Active Substance: POTASSIUM CHLORIDE

REACTIONS (4)
  - Erythema [Recovering/Resolving]
  - Pruritus [Recovering/Resolving]
  - Generalised erythema [Recovering/Resolving]
  - Rash [Recovering/Resolving]

NARRATIVE: CASE EVENT DATE: 20160104
